FAERS Safety Report 7508877-8 (Version None)
Quarter: 2011Q2

REPORT INFORMATION
  Report Type: 
  Country: None (occurrence: None)
  Receive Date: 20110527
  Receipt Date: 20110524
  Transmission Date: 20111010
  Serious: Yes (Hospitalization)
  Sender: FDA-Public Use
  Company Number: JP-BRISTOL-MYERS SQUIBB COMPANY-15469729

PATIENT
  Age: 60 Year
  Sex: Male

DRUGS (1)
  1. ABATACEPT [Suspect]
     Indication: RHEUMATOID ARTHRITIS
     Dosage: ALSO TAKEN 500MG/MONTH INTRAVENOUSLY SINCE 31JUL10:INTERR ON 18DEC10 AND 24DEC2010,REST ON 09FEB11
     Route: 058
     Dates: start: 20100731

REACTIONS (1)
  - CHOLANGITIS ACUTE [None]
